FAERS Safety Report 7512835-7 (Version None)
Quarter: 2011Q2

REPORT INFORMATION
  Report Type: 
  Country: None (occurrence: None)
  Receive Date: 20110531
  Receipt Date: 20110517
  Transmission Date: 20111010
  Serious: Yes (Hospitalization, Other)
  Sender: FDA-Public Use
  Company Number: AT-ELI_LILLY_AND_COMPANY-AT201105006730

PATIENT
  Age: 39 Year
  Sex: Male
  Weight: 121.2 kg

DRUGS (22)
  1. SEROQUEL [Concomitant]
     Dosage: 200 MG, UNKNOWN
     Dates: start: 20110323, end: 20110408
  2. ALCOHOL [Concomitant]
     Dosage: UNK UNK, UNKNOWN
     Dates: start: 20110302, end: 20110316
  3. CYMBALTA [Suspect]
     Dosage: 60 MG, QD
     Dates: start: 20110101, end: 20110318
  4. SEROQUEL [Concomitant]
     Dosage: 300 MG, UNKNOWN
     Dates: start: 20110320, end: 20110322
  5. PANTOLOC                           /01263202/ [Concomitant]
     Dosage: 40 MG, UNKNOWN
  6. PAROXETINE HCL [Concomitant]
     Dosage: 20 MG, UNKNOWN
     Dates: start: 20110325
  7. PARACODIN BITARTRATE TAB [Concomitant]
     Dosage: 15 GTT, UNKNOWN
     Dates: start: 20110316, end: 20110320
  8. LAMICTAL [Concomitant]
     Dosage: 250 MG, UNKNOWN
     Dates: start: 20110319, end: 20110330
  9. SEROQUEL [Concomitant]
     Dosage: 300 MG, UNKNOWN
     Dates: start: 20110301, end: 20110316
  10. SEROQUEL [Concomitant]
     Dosage: 200 MG, UNKNOWN
     Dates: start: 20110319, end: 20110319
  11. INDERAL [Concomitant]
     Dosage: 40 MG, UNKNOWN
  12. TRAZODONE HCL [Concomitant]
     Dosage: 150 MG, UNKNOWN
  13. SEROQUEL [Concomitant]
     Dosage: 100 MG, UNKNOWN
     Dates: start: 20110409
  14. LAMICTAL [Concomitant]
     Dosage: 200 MG, UNKNOWN
     Dates: start: 20110201, end: 20110318
  15. PAROXETINE HCL [Concomitant]
     Dosage: 10 MG, UNKNOWN
     Dates: start: 20110323, end: 20110324
  16. PARACODIN BITARTRATE TAB [Concomitant]
     Dosage: 7 GTT, UNKNOWN
     Dates: start: 20110321, end: 20110321
  17. LYRICA [Concomitant]
     Dosage: 50 MG, UNKNOWN
  18. LAMICTAL [Concomitant]
     Dosage: 300 MG, UNKNOWN
     Dates: start: 20110331
  19. PAROXETINE HCL [Concomitant]
     Dosage: 20 MG, UNKNOWN
     Dates: start: 20110319, end: 20110322
  20. CRESTOR [Concomitant]
     Dosage: 10 MG, UNKNOWN
  21. SEROQUEL [Concomitant]
     Dosage: 700 MG, UNKNOWN
     Dates: start: 20110317, end: 20110318
  22. CANDESARTAN CILEXETIL [Concomitant]
     Dosage: 16 MG, UNKNOWN

REACTIONS (12)
  - ALANINE AMINOTRANSFERASE INCREASED [None]
  - PATHOLOGICAL GAMBLING [None]
  - BLOOD CREATINE PHOSPHOKINASE INCREASED [None]
  - COMPULSIVE SHOPPING [None]
  - ASPARTATE AMINOTRANSFERASE INCREASED [None]
  - DYSPNOEA [None]
  - BLOOD TRIGLYCERIDES INCREASED [None]
  - DYSPHAGIA [None]
  - OROPHARYNGEAL SPASM [None]
  - BLOOD ALKALINE PHOSPHATASE INCREASED [None]
  - GAMMA-GLUTAMYLTRANSFERASE DECREASED [None]
  - HYPOMANIA [None]
